FAERS Safety Report 9315212 (Version 1)
Quarter: 2013Q2

REPORT INFORMATION
  Report Type: Report from Study
  Country: CA (occurrence: CA)
  Receive Date: 20130529
  Receipt Date: 20130529
  Transmission Date: 20140414
  Serious: Yes (Hospitalization)
  Sender: FDA-Public Use
  Company Number: CA-JNJFOC-20130517702

PATIENT
  Age: 59 Year
  Sex: Female

DRUGS (8)
  1. REMICADE [Suspect]
     Indication: RHEUMATOID ARTHRITIS
     Route: 042
     Dates: start: 20071128
  2. REMICADE [Suspect]
     Indication: COLITIS ULCERATIVE
     Route: 042
     Dates: start: 20071128
  3. METHOTREXATE [Concomitant]
     Route: 065
  4. SYNTHROID [Concomitant]
     Route: 065
  5. MICARDIS [Concomitant]
     Route: 065
  6. FOLIC ACID [Concomitant]
     Route: 065
  7. HCTZ [Concomitant]
     Route: 065
  8. NORVASC [Concomitant]
     Route: 065

REACTIONS (1)
  - Hip arthroplasty [Recovering/Resolving]
